FAERS Safety Report 6824158-X (Version None)
Quarter: 2010Q3

REPORT INFORMATION
  Report Type: 
  Country: None (occurrence: None)
  Receive Date: 20100708
  Receipt Date: 20100628
  Transmission Date: 20110219
  Serious: Yes (Hospitalization)
  Sender: FDA-Public Use
  Company Number: CA-ABBOTT-10P-028-0654573-00

PATIENT
  Sex: Female

DRUGS (6)
  1. HUMIRA [Suspect]
     Indication: CROHN'S DISEASE
     Route: 058
     Dates: start: 20070212
  2. WARFARIN SODIUM [Concomitant]
     Indication: THROMBOSIS
     Route: 048
  3. HYDROMORPHONE [Concomitant]
     Indication: PAIN
     Dosage: 8MG TWICE A DAY AND 4MG AS NEEDED BREAKTHROUGH
     Route: 048
  4. PERCOCET [Concomitant]
     Indication: PAIN
     Dosage: EVERY 4 HOURS AS NEEDED
     Route: 048
  5. FENTANYL [Concomitant]
     Indication: PAIN
     Dosage: EVERY 3 DAYS
     Route: 062
  6. TPN ELECTROLYTES IN PLASTIC CONTAINER [Concomitant]
     Indication: PRODUCT USED FOR UNKNOWN INDICATION
     Route: 051

REACTIONS (14)
  - BLOODY DISCHARGE [None]
  - CHEST PAIN [None]
  - DYSPNOEA [None]
  - EPISTAXIS [None]
  - HAEMOPTYSIS [None]
  - HEART RATE INCREASED [None]
  - NAUSEA [None]
  - PAINFUL RESPIRATION [None]
  - PNEUMONIA [None]
  - POST PROCEDURAL HAEMORRHAGE [None]
  - PULMONARY HAEMORRHAGE [None]
  - PYREXIA [None]
  - SEPSIS [None]
  - VOMITING [None]
